FAERS Safety Report 11246877 (Version 1)
Quarter: 2015Q3

REPORT INFORMATION
  Report Type: Spontaneous
  Country: US (occurrence: US)
  Receive Date: 20150708
  Receipt Date: 20150708
  Transmission Date: 20151125
  Serious: No
  Sender: FDA-Public Use
  Company Number: US-BIOGENIDEC-2015BI094217

PATIENT
  Age: 58 Year
  Sex: Female

DRUGS (10)
  1. METFORMIN [Concomitant]
     Active Substance: METFORMIN HYDROCHLORIDE
  2. CALCIUM [Concomitant]
     Active Substance: CALCIUM
  3. ENALAPRILAT. [Concomitant]
     Active Substance: ENALAPRILAT
  4. AVONEX [Suspect]
     Active Substance: INTERFERON BETA-1A
     Indication: MULTIPLE SCLEROSIS
     Route: 030
     Dates: start: 200405
  5. AESCULUS HIPPOCASTANUS [Concomitant]
  6. ASCORBIC ACID. [Concomitant]
     Active Substance: ASCORBIC ACID
  7. GINKGO BILOBA [Concomitant]
     Active Substance: GINKGO
  8. INSULIN [Concomitant]
     Active Substance: INSULIN NOS
  9. ROSIGLITAZONE [Concomitant]
     Active Substance: ROSIGLITAZONE
  10. ENALAPRIL [Concomitant]
     Active Substance: ENALAPRIL

REACTIONS (1)
  - Diarrhoea [Unknown]

NARRATIVE: CASE EVENT DATE: 20070709
